FAERS Safety Report 6112035-1 (Version None)
Quarter: 2009Q1

REPORT INFORMATION
  Report Type: 
  Country: None (occurrence: None)
  Receive Date: 20090311
  Receipt Date: 20080603
  Transmission Date: 20090719
  Serious: Yes (Life-Threatening, Other)
  Sender: FDA-Public Use
  Company Number: JP-PFIZER INC-2009178080

PATIENT

DRUGS (7)
  1. MIGLITOL [Suspect]
     Indication: DIABETES MELLITUS
     Dosage: 150 MG, UNK
     Route: 048
     Dates: start: 20080306, end: 20080415
  2. ASPIRIN [Suspect]
     Indication: ANTICOAGULANT THERAPY
     Dosage: 100 MG, UNK
     Route: 048
     Dates: start: 20060101
  3. GASTER [Suspect]
     Indication: REFLUX OESOPHAGITIS
     Dosage: 20 MG, UNK
     Route: 048
     Dates: start: 20060101
  4. DEPAS [Suspect]
     Indication: SLEEP DISORDER
     Dosage: 0.5 MG, UNK
     Route: 048
     Dates: start: 20060101
  5. METFORMIN HCL [Suspect]
     Indication: DIABETES MELLITUS
     Dosage: 500 MG, UNK
     Route: 048
     Dates: start: 20071001
  6. VASOLAN [Suspect]
     Dosage: UNK
     Route: 048
  7. PRONON [Concomitant]
     Indication: ARRHYTHMIA
     Dosage: 1350 MG, UNK
     Route: 048
     Dates: start: 20060101

REACTIONS (3)
  - GENERALISED OEDEMA [None]
  - HEPATIC FUNCTION ABNORMAL [None]
  - MALAISE [None]
